FAERS Safety Report 9448874 (Version 2)
Quarter: 2013Q3

REPORT INFORMATION
  Report Type: Spontaneous
  Country: AU (occurrence: AU)
  Receive Date: 20130808
  Receipt Date: 20130820
  Transmission Date: 20140515
  Serious: Yes (Death)
  Sender: FDA-Public Use
  Company Number: AU-B.I. PHARMACEUTICALS,INC./RIDGEFIELD-2013-AU-00960AU

PATIENT
  Sex: Male
  Weight: 68 kg

DRUGS (7)
  1. PRADAXA [Suspect]
     Indication: CEREBROVASCULAR ACCIDENT PROPHYLAXIS
     Dosage: 220 MG
     Dates: start: 20110413, end: 20110418
  2. PRADAXA [Suspect]
     Indication: ATRIAL FIBRILLATION
  3. ATACAND [Concomitant]
  4. CRESTOR [Concomitant]
  5. DIGOXIN [Concomitant]
  6. SPIRONOLACTONE [Concomitant]
  7. FRUSEMIDE [Concomitant]

REACTIONS (2)
  - Renal failure [Fatal]
  - Infection [Unknown]
